FAERS Safety Report 8539696-1 (Version None)
Quarter: 2012Q3

REPORT INFORMATION
  Report Type: 
  Country: None (occurrence: None)
  Receive Date: 20120726
  Receipt Date: 20110810
  Transmission Date: 20120928
  Serious: No
  Sender: FDA-Public Use
  Company Number: US-ASTRAZENECA-2009SE31220

PATIENT
  Age: 49 Year
  Sex: Female

DRUGS (1)
  1. SEROQUEL [Suspect]
     Route: 048

REACTIONS (7)
  - HYPERTENSION [None]
  - FALL [None]
  - DRUG DOSE OMISSION [None]
  - AGITATION [None]
  - BIPOLAR DISORDER [None]
  - EMPHYSEMA [None]
  - DIABETES MELLITUS [None]
